FAERS Safety Report 5174603-3 (Version None)
Quarter: 2006Q4

REPORT INFORMATION
  Report Type: 
  Country: None (occurrence: None)
  Receive Date: 20061206
  Receipt Date: 20061124
  Transmission Date: 20070319
  Serious: Yes (Hospitalization)
  Sender: FDA-Public Use
  Company Number: DEWYE643324NOV06

PATIENT
  Age: 18 Year
  Sex: Female

DRUGS (3)
  1. VENLAFAXINE HCL EXTENDED-RELEASE [Suspect]
     Dosage: ORAL
     Route: 048
     Dates: start: 20061123, end: 20061123
  2. ABILIFY [Suspect]
     Dosage: 7 TABLETS (OVERDOSE AMOUNT 70MG)) ORAL
     Route: 048
     Dates: start: 20061123, end: 20061123
  3. VIVINOX SCHLAFDRAGEES /OLD FORM/ (DIPHENHYDRAMINE HYDROCHLORIDE/HUMULU [Suspect]
     Dosage: ORAL
     Route: 048
     Dates: start: 20061123, end: 20061123

REACTIONS (5)
  - DISORIENTATION [None]
  - DYSARTHRIA [None]
  - INTENTIONAL OVERDOSE [None]
  - SUICIDE ATTEMPT [None]
  - TACHYCARDIA [None]
